FAERS Safety Report 12704848 (Version 1)
Quarter: 2016Q3

REPORT INFORMATION
  Report Type: Spontaneous
  Country: US (occurrence: US)
  Receive Date: 20160831
  Receipt Date: 20160831
  Transmission Date: 20161109
  Serious: Yes (Other)
  Sender: FDA-Public Use
  Company Number: US-LUNDBECK-DKLU2018463

PATIENT
  Sex: Male

DRUGS (8)
  1. ONFI [Suspect]
     Active Substance: CLOBAZAM
     Route: 065
     Dates: start: 201510
  2. KLONOPIN [Concomitant]
     Active Substance: CLONAZEPAM
     Indication: PRODUCT USED FOR UNKNOWN INDICATION
     Route: 065
  3. ONFI [Suspect]
     Active Substance: CLOBAZAM
     Route: 065
  4. ONFI [Suspect]
     Active Substance: CLOBAZAM
     Route: 065
     Dates: start: 201602
  5. ONFI [Suspect]
     Active Substance: CLOBAZAM
     Route: 065
     Dates: start: 201510
  6. ONFI [Suspect]
     Active Substance: CLOBAZAM
     Route: 065
     Dates: start: 20160125
  7. ONFI [Suspect]
     Active Substance: CLOBAZAM
     Indication: COMPLEX PARTIAL SEIZURES
     Route: 065
  8. DEPAKOTE [Concomitant]
     Active Substance: DIVALPROEX SODIUM
     Indication: PRODUCT USED FOR UNKNOWN INDICATION
     Route: 065

REACTIONS (3)
  - Seizure [Unknown]
  - Aggression [Recovering/Resolving]
  - Somnolence [Unknown]
